FAERS Safety Report 5031059-9 (Version None)
Quarter: 2006Q2

REPORT INFORMATION
  Report Type: 
  Country: None (occurrence: None)
  Receive Date: 20060615
  Receipt Date: 20060601
  Transmission Date: 20061013
  Serious: Yes (Other)
  Sender: FDA-Public Use
  Company Number: 2006RR-02549

PATIENT
  Age: 5 Day
  Sex: Male

DRUGS (1)
  1. FLUOXETINE [Suspect]
     Dosage: 40 MG QD INTRA-UTERINE
     Route: 015

REACTIONS (12)
  - DRUG EXPOSURE DURING PREGNANCY [None]
  - ELECTROENCEPHALOGRAM ABNORMAL [None]
  - FEEDING DISORDER NEONATAL [None]
  - FEELING JITTERY [None]
  - HYPERTONIA NEONATAL [None]
  - HYPOTHERMIA NEONATAL [None]
  - HYPOTONIA NEONATAL [None]
  - IRRITABILITY [None]
  - MYOCLONUS [None]
  - OPISTHOTONUS [None]
  - RESTLESSNESS [None]
  - TARDIVE DYSKINESIA [None]
